FAERS Safety Report 21096248 (Version 4)
Quarter: 2022Q3

REPORT INFORMATION
  Report Type: Spontaneous
  Country: JP (occurrence: JP)
  Receive Date: 20220718
  Receipt Date: 20220811
  Transmission Date: 20221026
  Serious: Yes (Hospitalization)
  Sender: FDA-Public Use
  Company Number: JP-LUNDBECK-DKLU3050161

PATIENT
  Sex: Male

DRUGS (1)
  1. ESCITALOPRAM OXALATE [Suspect]
     Active Substance: ESCITALOPRAM OXALATE
     Indication: Depression
     Dosage: 20 MG, QD
     Route: 048
     Dates: start: 202206

REACTIONS (2)
  - Sinus bradycardia [Recovering/Resolving]
  - Road traffic accident [Unknown]

NARRATIVE: CASE EVENT DATE: 20220609
